FAERS Safety Report 5476106-5 (Version None)
Quarter: 2007Q4

REPORT INFORMATION
  Report Type: 
  Country: None (occurrence: None)
  Receive Date: 20071003
  Receipt Date: 20070924
  Transmission Date: 20080405
  Serious: Yes (Other)
  Sender: FDA-Public Use
  Company Number: HQWYE340427SEP07

PATIENT
  Age: 42 Year
  Sex: Female
  Weight: 66 kg

DRUGS (5)
  1. SIROLIMUS [Suspect]
     Indication: PROPHYLAXIS AGAINST TRANSPLANT REJECTION
     Dosage: UNKNOWN; DOSE TAPERED
  2. DACLIZUMAB [Concomitant]
  3. INSULIN LISPRO [Concomitant]
     Dosage: UNKNOWN DOSE VIA INSULIN PUMP
     Route: 058
  4. PREDNISONE [Concomitant]
  5. TACROLIMUS [Concomitant]

REACTIONS (2)
  - DIARRHOEA [None]
  - LARGE INTESTINAL ULCER [None]
